FAERS Safety Report 8168216-9 (Version None)
Quarter: 2012Q1

REPORT INFORMATION
  Report Type: 
  Country: None (occurrence: None)
  Receive Date: 20120227
  Receipt Date: 20120222
  Transmission Date: 20120608
  Serious: Yes (Other)
  Sender: FDA-Public Use
  Company Number: US-PFIZER INC-2012006425

PATIENT
  Sex: Female
  Weight: 58.05 kg

DRUGS (5)
  1. CHANTIX [Suspect]
     Dosage: UNK
     Dates: start: 20110101, end: 20111201
  2. LORTAB [Concomitant]
     Indication: PAIN
     Dosage: 7.5/500, DAILY
     Dates: start: 20080101
  3. TRAZODONE [Concomitant]
     Indication: INSOMNIA
     Dosage: 75 MG, 1X/DAY AT BEDTIME
     Dates: start: 20080101
  4. CHANTIX [Suspect]
     Indication: SMOKING CESSATION THERAPY
     Dosage: 0.5 MG, DAILY
     Route: 048
     Dates: start: 20111101, end: 20110101
  5. HYDROCODONE [Concomitant]
     Indication: BACK PAIN
     Dosage: UNK

REACTIONS (3)
  - APHTHOUS STOMATITIS [None]
  - ORAL DISORDER [None]
  - MALAISE [None]
